FAERS Safety Report 10133864 (Version 1)
Quarter: 2014Q2

REPORT INFORMATION
  Report Type: Report from Study
  Country: AU (occurrence: AU)
  Receive Date: 20140428
  Receipt Date: 20140428
  Transmission Date: 20141212
  Serious: Yes (Other)
  Sender: FDA-Public Use
  Company Number: PHHY2014AU050198

PATIENT
  Sex: Female

DRUGS (9)
  1. ACLASTA [Suspect]
     Dosage: 5 MG
     Route: 042
     Dates: start: 20110112
  2. ACLASTA [Suspect]
     Dosage: 5 MG
     Route: 042
     Dates: start: 20120215
  3. ACLASTA [Suspect]
     Dosage: 5 MG
     Route: 042
     Dates: start: 20130220
  4. TWYNSTA [Concomitant]
     Dosage: 1 DF, DAILY
  5. CRESTOR [Concomitant]
     Dosage: 20 MG, DAILY
  6. STILNOX [Concomitant]
     Dosage: 12.5 MG, PRN
  7. CALTRATE [Concomitant]
     Dosage: 1 DF, DAILY
  8. PANADOL [Concomitant]
     Dosage: UNK, 1-2 BID
  9. NADOLOL [Concomitant]
     Dosage: UNK, AS NEEDED

REACTIONS (6)
  - Spinal compression fracture [Unknown]
  - Hypertension [Unknown]
  - Spinal osteoarthritis [Unknown]
  - Overweight [Unknown]
  - Osteoarthritis [Unknown]
  - Bone density decreased [Unknown]
